FAERS Safety Report 20394502 (Version 6)
Quarter: 2022Q3

REPORT INFORMATION
  Report Type: Report from Study
  Country: CO (occurrence: CO)
  Receive Date: 20220129
  Receipt Date: 20220803
  Transmission Date: 20221026
  Serious: Yes (Hospitalization, Other)
  Sender: FDA-Public Use
  Company Number: CO-NOVARTISPH-NVSC2022CO015130

PATIENT
  Sex: Female

DRUGS (1)
  1. BROLUCIZUMAB [Suspect]
     Active Substance: BROLUCIZUMAB
     Indication: Neovascular age-related macular degeneration
     Dosage: 120 MG, QMO
     Route: 047

REACTIONS (7)
  - General physical health deterioration [Not Recovered/Not Resolved]
  - Large intestinal haemorrhage [Unknown]
  - Haematemesis [Unknown]
  - Malaise [Unknown]
  - Rectal haemorrhage [Unknown]
  - Anaemia [Unknown]
  - Incorrect dose administered [Unknown]
